FAERS Safety Report 8152118-8 (Version None)
Quarter: 2012Q1

REPORT INFORMATION
  Report Type: 
  Country: None (occurrence: None)
  Receive Date: 20120221
  Receipt Date: 20120217
  Transmission Date: 20120608
  Serious: Yes (Hospitalization)
  Sender: FDA-Public Use
  Company Number: US-PFIZER INC-2012043616

PATIENT
  Sex: Female

DRUGS (2)
  1. VICODIN [Interacting]
     Indication: PAIN
     Dosage: UNK, AS NEEDED
  2. CHANTIX [Suspect]
     Dosage: UNK

REACTIONS (3)
  - DRUG INTERACTION [None]
  - SURGERY [None]
  - HYPOKINESIA [None]
